FAERS Safety Report 25312988 (Version 3)
Quarter: 2025Q3

REPORT INFORMATION
  Report Type: Report from Study
  Country: US (occurrence: US)
  Receive Date: 20250514
  Receipt Date: 20250814
  Transmission Date: 20251021
  Serious: Yes (Other)
  Sender: DECIPHERA PHARMACEUTICALS
  Company Number: US-DECIPHERA PHARMACEUTICALS LLC-2025US000412

PATIENT
  Age: 36 Year
  Sex: Male

DRUGS (1)
  1. ROMVIMZA [Suspect]
     Active Substance: VIMSELTINIB
     Indication: Synovitis
     Dosage: 30 MILLIGRAM, TWICE WEEKLY
     Route: 048
     Dates: start: 20250415

REACTIONS (7)
  - Neuropathy peripheral [Unknown]
  - Periorbital swelling [Unknown]
  - Swelling face [Unknown]
  - Abdominal discomfort [Recovering/Resolving]
  - Joint swelling [Unknown]
  - Eye haemorrhage [Unknown]
  - Eye oedema [Unknown]

NARRATIVE: CASE EVENT DATE: 20250101
